FAERS Safety Report 5628125-3 (Version None)
Quarter: 2008Q1

REPORT INFORMATION
  Report Type: 
  Country: None (occurrence: None)
  Receive Date: 20080215
  Receipt Date: 20080207
  Transmission Date: 20080703
  Serious: Yes (Death, Hospitalization)
  Sender: FDA-Public Use
  Company Number: GB-ELI_LILLY_AND_COMPANY-GB200802001656

PATIENT
  Age: 69 Year
  Sex: Male

DRUGS (4)
  1. ALIMTA [Suspect]
     Dosage: 800 MG/M2, UNKNOWN
     Route: 065
     Dates: start: 20080101
  2. CISPLATIN [Concomitant]
     Dosage: UNK, UNKNOWN
     Route: 065
  3. VITAMIN B-12 [Concomitant]
     Indication: SUPPLEMENTATION THERAPY
     Dosage: UNK, UNKNOWN
     Route: 065
  4. FOLIC ACID [Concomitant]
     Indication: SUPPLEMENTATION THERAPY
     Dosage: UNK, UNKNOWN
     Route: 065

REACTIONS (2)
  - CARDIAC ARREST [None]
  - HOSPITALISATION [None]
